FAERS Safety Report 9421154 (Version 1)
Quarter: 2013Q3

REPORT INFORMATION
  Report Type: Spontaneous
  Country: GB (occurrence: GB)
  Receive Date: 20130725
  Receipt Date: 20130725
  Transmission Date: 20140515
  Serious: Yes (Other)
  Sender: FDA-Public Use
  Company Number: PHHY2013GB076979

PATIENT
  Age: 56 Year
  Sex: Male
  Weight: 68.3 kg

DRUGS (4)
  1. TRAMADOL [Suspect]
  2. TAPENTADOL HYDROCHLORIDE [Interacting]
     Indication: PAIN
     Dosage: 100 MG, BID (PLUS 50MG FOR BREAKTHROUGH PAIN)
     Route: 048
  3. CO-CODAMOL [Concomitant]
  4. BACLOFEN [Concomitant]

REACTIONS (8)
  - Pain [Recovering/Resolving]
  - Malaise [Unknown]
  - Anxiety [Recovering/Resolving]
  - Hypertension [Recovering/Resolving]
  - Urinary retention [Recovering/Resolving]
  - Headache [Recovering/Resolving]
  - Drug ineffective [Unknown]
  - Drug interaction [Unknown]
